FAERS Safety Report 8405773-9 (Version None)
Quarter: 2012Q2

REPORT INFORMATION
  Report Type: 
  Country: None (occurrence: None)
  Receive Date: 20120529
  Receipt Date: 20060221
  Transmission Date: 20120825
  Serious: Yes (Other)
  Sender: FDA-Public Use
  Company Number: 02100-JPN-07-0044

PATIENT
  Age: 68 Year
  Sex: Male
  Weight: 59.2 kg

DRUGS (14)
  1. XANBON (OZAGREL) INJECTION [Suspect]
     Indication: CEREBRAL INFARCTION
     Dosage: 80 MG, BID, IV DRIP
     Route: 041
     Dates: start: 20060619, end: 20060626
  2. DEXTROSE 5% [Concomitant]
  3. AMINOFLUID (GLUCOSE, AMINO ACIDS NOS, ELECTROLYTES NOS) [Concomitant]
  4. SANCOBA (CYANOCOBALAMIN) [Concomitant]
  5. PLETAL [Suspect]
     Indication: CEREBRAL INFARCTION
     Dosage: 100 MG, BID, ORAL
     Route: 048
     Dates: start: 20060628, end: 20060708
  6. GLYCEOL (GLYCEROL, FRUCTOSE) [Concomitant]
  7. ASPIRIN [Concomitant]
  8. MAINTENANCE MEDIUM [Concomitant]
  9. LOW-MOLECULAR DEXTRAN L (DEXTRAN50 LACTATED RINGER'S SOLUTION) [Concomitant]
  10. NICARDIPINE HYDROCHLORIDE [Concomitant]
  11. ARGATROBAN [Suspect]
     Dosage: 60 MG, QD, IV DRIP 10 MG, BID, IV DRIP
     Route: 041
     Dates: start: 20060621, end: 20060625
  12. ARGATROBAN [Suspect]
     Dosage: 60 MG, QD, IV DRIP 10 MG, BID, IV DRIP
     Route: 041
     Dates: start: 20060619, end: 20060620
  13. NICHOLIN-H (CITICOLINE) [Concomitant]
  14. RADICUT (EDARAVONE) INJECTION [Suspect]
     Indication: CEREBRAL INFARCTION
     Dosage: 30 MG, BID, IV DRIP
     Route: 041
     Dates: start: 20060619, end: 20060626

REACTIONS (9)
  - ASPARTATE AMINOTRANSFERASE INCREASED [None]
  - ALANINE AMINOTRANSFERASE INCREASED [None]
  - STAPHYLOCOCCAL INFECTION [None]
  - GAMMA-GLUTAMYLTRANSFERASE INCREASED [None]
  - BLOOD LACTATE DEHYDROGENASE INCREASED [None]
  - BLOOD ALKALINE PHOSPHATASE INCREASED [None]
  - DIARRHOEA [None]
  - HEPATIC FUNCTION ABNORMAL [None]
  - PNEUMONIA ASPIRATION [None]
